FAERS Safety Report 4721649-2 (Version None)
Quarter: 2005Q3

REPORT INFORMATION
  Report Type: 
  Country: None (occurrence: None)
  Receive Date: 20050721
  Receipt Date: 20050202
  Transmission Date: 20060218
  Serious: No
  Sender: FDA-Public Use
  Company Number: US-BRISTOL-MYERS SQUIBB COMPANY-12846101

PATIENT
  Age: 85 Year
  Sex: Male
  Weight: 79 kg

DRUGS (9)
  1. COUMADIN [Suspect]
     Indication: CARDIAC DISORDER
     Dosage: THERAPY WAS ONGOING 5-6 YEARS
     Dates: end: 20041101
  2. CLOPIDOGREL BISULFATE [Suspect]
     Dates: start: 20041101
  3. ASPIRIN [Concomitant]
     Dosage: ONGOING FOR SEVERAL YEARS
  4. DIGOXIN TAB [Concomitant]
     Dosage: ONGOING FOR SEVERAL YEARS
  5. METOPROLOL [Concomitant]
     Dosage: ONGOING FOR SEVERAL YEARS
  6. VITAMIN B COMPLEX CAP [Concomitant]
     Dosage: ONGOING FOR SEVERAL YEARS
  7. ASCORBIC ACID [Concomitant]
     Dosage: ONGOING FOR SEVERAL YEARS
  8. ZESTRIL [Concomitant]
     Dosage: ONGOING FOR SEVERAL YEARS
  9. ZOCOR [Concomitant]
     Dosage: ONGOING FOR SEVERAL YEARS

REACTIONS (2)
  - CONTUSION [None]
  - EPISTAXIS [None]
